FAERS Safety Report 7294844-9 (Version None)
Quarter: 2011Q1

REPORT INFORMATION
  Report Type: 
  Country: None (occurrence: None)
  Receive Date: 20110216
  Receipt Date: 20110203
  Transmission Date: 20110831
  Serious: Yes (Other)
  Sender: FDA-Public Use
  Company Number: US-ELI_LILLY_AND_COMPANY-US201102001287

PATIENT
  Sex: Female

DRUGS (8)
  1. MULTI-VITAMIN [Concomitant]
  2. FORTEO [Suspect]
     Indication: OSTEOPOROSIS
     Dosage: 20 UG, DAILY (1/D)
     Dates: start: 20040101, end: 20060101
  3. NORVASC [Concomitant]
  4. PLAVIX [Concomitant]
  5. ZOCOR [Concomitant]
  6. FORTEO [Suspect]
     Dosage: 20 UG, DAILY (1/D)
     Dates: start: 20100701, end: 20110101
  7. CALCIUM [Concomitant]
  8. VITAMIN D [Concomitant]

REACTIONS (4)
  - SMALL CELL LUNG CANCER LIMITED STAGE [None]
  - BACK PAIN [None]
  - COMPRESSION FRACTURE [None]
  - BLOOD CALCIUM INCREASED [None]
